FAERS Safety Report 8385719-2 (Version None)
Quarter: 2012Q2

REPORT INFORMATION
  Report Type: 
  Country: None (occurrence: None)
  Receive Date: 20120523
  Receipt Date: 20120523
  Transmission Date: 20120825
  Serious: Yes (Other)
  Sender: FDA-Public Use
  Company Number: None

PATIENT
  Sex: Female
  Weight: 81.6475 kg

DRUGS (2)
  1. TRAMADOL HYDROCHLORIDE/ACETAMINOPHEN [Suspect]
     Indication: SPINAL PAIN
     Dosage: 1 TAB 37.5/325 4 X P DAY 047
     Route: 048
     Dates: start: 20120301, end: 20120423
  2. TRAMADOL HYDROCHLORIDE/ACETAMINOPHEN [Suspect]
     Indication: ARTHRALGIA
     Dosage: 1 TAB 37.5/325 4 X P DAY 047
     Route: 048
     Dates: start: 20120301, end: 20120423

REACTIONS (7)
  - CONSTIPATION [None]
  - TREATMENT FAILURE [None]
  - BLADDER DISORDER [None]
  - NERVOUSNESS [None]
  - HEADACHE [None]
  - GASTRIC DISORDER [None]
  - NAUSEA [None]
